FAERS Safety Report 7373470-7 (Version None)
Quarter: 2011Q1

REPORT INFORMATION
  Report Type: 
  Country: None (occurrence: None)
  Receive Date: 20110325
  Receipt Date: 20110314
  Transmission Date: 20110831
  Serious: Yes (Hospitalization)
  Sender: FDA-Public Use
  Company Number: US-BIOGENIDEC-2011BI001007

PATIENT
  Age: 52 Year
  Sex: Female

DRUGS (1)
  1. TYSABRI [Suspect]
     Indication: MULTIPLE SCLEROSIS
     Route: 042
     Dates: start: 20100519, end: 20100901

REACTIONS (6)
  - CHOLELITHIASIS [None]
  - OXYGEN SATURATION DECREASED [None]
  - ABDOMINAL PAIN UPPER [None]
  - HIATUS HERNIA [None]
  - NAUSEA [None]
  - VOMITING [None]
